FAERS Safety Report 6287699-2 (Version None)
Quarter: 2009Q3

REPORT INFORMATION
  Report Type: 
  Country: None (occurrence: None)
  Receive Date: 20090717
  Receipt Date: 20080702
  Transmission Date: 20100115
  Serious: Yes (Other)
  Sender: FDA-Public Use
  Company Number: 2008SP013245

PATIENT
  Sex: Female

DRUGS (5)
  1. INTEGRILIN [Suspect]
     Indication: PERCUTANEOUS CORONARY INTERVENTION
     Dosage: IV / INBO
     Route: 042
     Dates: start: 20080630, end: 20080630
  2. INTEGRILIN [Suspect]
     Indication: PERCUTANEOUS CORONARY INTERVENTION
     Dosage: IV / INBO
     Route: 042
     Dates: start: 20060101
  3. HEPARIN [Suspect]
     Indication: PERCUTANEOUS CORONARY INTERVENTION
     Dosage: 4000 ; IV
     Route: 042
     Dates: start: 20080630, end: 20080630
  4. HEPARIN [Suspect]
     Indication: PERCUTANEOUS CORONARY INTERVENTION
     Dosage: 4000 ; IV
     Route: 042
     Dates: start: 20060101
  5. . [Concomitant]

REACTIONS (1)
  - THROMBOCYTOPENIA [None]
